FAERS Safety Report 20617558 (Version 1)
Quarter: 2022Q1

REPORT INFORMATION
  Report Type: Report from Study
  Country: PT (occurrence: PT)
  Receive Date: 20220321
  Receipt Date: 20220321
  Transmission Date: 20220423
  Serious: Yes (Hospitalization)
  Sender: FDA-Public Use
  Company Number: PT-PFIZER INC-202200367500

PATIENT
  Age: 68 Year
  Sex: Male

DRUGS (3)
  1. SUNITINIB MALATE [Suspect]
     Active Substance: SUNITINIB MALATE
     Indication: Renal cell carcinoma
     Dosage: 50 MG, 4/2 WEEKS
     Route: 048
     Dates: start: 20190326, end: 20190618
  2. SUNITINIB MALATE [Suspect]
     Active Substance: SUNITINIB MALATE
     Dosage: 50 MG, 2/1 WEEKS
     Route: 048
     Dates: start: 20190619, end: 20200630
  3. SUNITINIB MALATE [Suspect]
     Active Substance: SUNITINIB MALATE
     Dosage: 50 MG, 2/1 WEEKS
     Route: 048
     Dates: start: 20200701, end: 202104

REACTIONS (1)
  - Ischaemic stroke [Recovered/Resolved]

NARRATIVE: CASE EVENT DATE: 20210401
